FAERS Safety Report 4647124-1 (Version None)
Quarter: 2005Q2

REPORT INFORMATION
  Report Type: 
  Country: None (occurrence: None)
  Receive Date: 20050428
  Receipt Date: 20050418
  Transmission Date: 20051028
  Serious: Yes (Disabling, Other)
  Sender: FDA-Public Use
  Company Number: GB-JNJFOC-20050404068

PATIENT
  Age: 55 Year
  Sex: Female
  Weight: 48 kg

DRUGS (9)
  1. REMICADE [Suspect]
     Indication: RHEUMATOID ARTHRITIS
     Route: 042
  2. PREDNISOLONE [Concomitant]
     Indication: RHEUMATOID ARTHRITIS
     Route: 065
  3. OXYBUTYNIN [Concomitant]
     Indication: POLLAKIURIA
     Route: 065
  4. LANSOPRAZOLE [Concomitant]
     Indication: PROPHYLAXIS AGAINST GASTROINTESTINAL ULCER
     Route: 065
  5. CO-CODAMOL [Concomitant]
     Route: 065
  6. CO-CODAMOL [Concomitant]
     Dosage: 30/500
     Route: 065
  7. FOSAMAX [Concomitant]
     Indication: OSTEOPOROSIS PROPHYLAXIS
     Route: 065
  8. VIOXX [Concomitant]
     Indication: INFLAMMATION
     Route: 065
  9. AMITRIPTYLINE HCL TAB [Concomitant]
     Indication: ANALGESIC EFFECT
     Route: 065

REACTIONS (5)
  - ASTHENIA [None]
  - CHEST PAIN [None]
  - DYSPNOEA [None]
  - ELECTROCARDIOGRAM T WAVE INVERSION [None]
  - PALPITATIONS [None]
